FAERS Safety Report 22704988 (Version 7)
Quarter: 2023Q4

REPORT INFORMATION
  Report Type: Report from Study
  Country: US (occurrence: US)
  Receive Date: 20230714
  Receipt Date: 20231025
  Transmission Date: 20240110
  Serious: No
  Sender: FDA-Public Use
  Company Number: US-002147023-NVSC2023US156265

PATIENT
  Sex: Male

DRUGS (4)
  1. ENTRESTO [Suspect]
     Active Substance: SACUBITRIL\VALSARTAN
     Indication: Myocardial infarction
     Dosage: 1 DOSAGE FORM, BID (24/26 MG)
     Route: 048
     Dates: start: 202306
  2. ENTRESTO [Suspect]
     Active Substance: SACUBITRIL\VALSARTAN
     Dosage: 1 DOSAGE FORM, BID (49/51 MG, DOSE INCREASED FROM AUG 2023)
     Route: 048
  3. METFORMIN [Suspect]
     Active Substance: METFORMIN HYDROCHLORIDE
     Indication: Product used for unknown indication
     Dosage: UNK
     Route: 065
  4. METFORMIN [Suspect]
     Active Substance: METFORMIN HYDROCHLORIDE
     Dosage: 0.5 DOSAGE FORM (DOSE DECREASED)
     Route: 065

REACTIONS (10)
  - Chest pain [Unknown]
  - Back pain [Unknown]
  - Musculoskeletal chest pain [Unknown]
  - Cough [Unknown]
  - Respiratory tract congestion [Unknown]
  - Fatigue [Unknown]
  - Product use in unapproved indication [Unknown]
  - Arterial occlusive disease [Unknown]
  - Blood glucose decreased [Recovering/Resolving]
  - Hypertension [Unknown]

NARRATIVE: CASE EVENT DATE: 20230101
